FAERS Safety Report 6519556-8 (Version None)
Quarter: 2009Q4

REPORT INFORMATION
  Report Type: 
  Country: None (occurrence: None)
  Receive Date: 20091228
  Receipt Date: 20091215
  Transmission Date: 20100525
  Serious: No
  Sender: FDA-Public Use
  Company Number: US-B.I. PHARMACEUTICALS,INC./RIDGEFIELD-2009-BP-14492PF

PATIENT
  Age: 63 Year
  Sex: Female

DRUGS (6)
  1. SPIRIVA [Suspect]
     Indication: CHRONIC OBSTRUCTIVE PULMONARY DISEASE
     Route: 055
  2. ADVAIR DISKUS 100/50 [Concomitant]
  3. THEOPHYLLINE [Concomitant]
  4. FOSAMAX [Concomitant]
  5. DETIASIN [Concomitant]
  6. DIFLUCAN [Concomitant]

REACTIONS (4)
  - BLOOD URINE PRESENT [None]
  - EPISTAXIS [None]
  - HAEMATOCHEZIA [None]
  - OEDEMA PERIPHERAL [None]
